FAERS Safety Report 11204994 (Version 1)
Quarter: 2015Q2

REPORT INFORMATION
  Report Type: Spontaneous
  Country: GB (occurrence: None)
  Receive Date: 20150617
  Receipt Date: 20150617
  Transmission Date: 20150821
  Serious: No
  Sender: FDA-Public Use
  Company Number: GB-2015-1400

PATIENT
  Age: 72 Year
  Sex: Male
  Weight: 99 kg

DRUGS (7)
  1. ALLOPURINOL. [Concomitant]
     Active Substance: ALLOPURINOL
  2. ORPHENADRINE (ORPHENADRINE HYDROCHLORIDE) [Concomitant]
  3. ESCITALOPRAM [Concomitant]
     Active Substance: ESCITALOPRAM OXALATE
  4. RASAGILINE [Concomitant]
     Active Substance: RASAGILINE
  5. CO-CARELDOPA (CARBIDOPA, LEVODOPA) [Concomitant]
  6. ASPIRIN (ACETYLSALICYLIC ACID) [Concomitant]
     Active Substance: ASPIRIN
  7. PROPRANOLOL [Suspect]
     Active Substance: PROPRANOLOL\PROPRANOLOL HYDROCHLORIDE
     Indication: PRODUCT USED FOR UNKNOWN INDICATION
     Dates: start: 20150115

REACTIONS (1)
  - Visual impairment [None]

NARRATIVE: CASE EVENT DATE: 20150318
